FAERS Safety Report 7250047-5 (Version None)
Quarter: 2011Q1

REPORT INFORMATION
  Report Type: 
  Country: None (occurrence: None)
  Receive Date: 20110128
  Receipt Date: 20101215
  Transmission Date: 20110831
  Serious: Yes (Hospitalization)
  Sender: FDA-Public Use
  Company Number: US-BAYER-201036613NA

PATIENT
  Sex: Female
  Weight: 63.492 kg

DRUGS (6)
  1. IBUPROFEN [Concomitant]
     Dosage: UNK
     Dates: start: 20000101
  2. YASMIN [Suspect]
     Indication: MENSTRUAL DISORDER
  3. OCELLA [Suspect]
     Indication: ACNE
     Dosage: UNK
     Dates: start: 20050601, end: 20100701
  4. OCELLA [Suspect]
     Indication: MENSTRUAL DISORDER
  5. YASMIN [Suspect]
     Indication: ACNE
     Dosage: UNK
     Dates: start: 20050601, end: 20100701
  6. YAZ [Suspect]
     Indication: ACNE

REACTIONS (1)
  - CHOLECYSTECTOMY [None]
